FAERS Safety Report 5388967-9 (Version None)
Quarter: 2007Q3

REPORT INFORMATION
  Report Type: 
  Country: None (occurrence: None)
  Receive Date: 20070717
  Receipt Date: 20070709
  Transmission Date: 20080115
  Serious: Yes (Other)
  Sender: FDA-Public Use
  Company Number: PHEH2007US09839

PATIENT

DRUGS (3)
  1. TEKTURNA [Suspect]
     Route: 048
  2. LASIX [Concomitant]
  3. ZEROXIL [Concomitant]

REACTIONS (1)
  - RENAL FAILURE [None]
